FAERS Safety Report 7012098-5 (Version None)
Quarter: 2010Q3

REPORT INFORMATION
  Report Type: 
  Country: None (occurrence: None)
  Receive Date: 20100922
  Receipt Date: 20100922
  Transmission Date: 20110219
  Serious: Yes (Life-Threatening)
  Sender: FDA-Public Use
  Company Number: None

PATIENT
  Age: 74 Year
  Sex: Female
  Weight: 75.6 kg

DRUGS (11)
  1. FERRLECIT [Suspect]
     Indication: ANAEMIA
     Dosage: FERRLECIT 250 MG IV 08:47-10:47
     Route: 042
     Dates: start: 20100910
  2. NORCO [Concomitant]
  3. MIRALAX [Concomitant]
  4. OMEPRAZOLE [Concomitant]
  5. MULTI-VITAMIN [Concomitant]
  6. NIFEREX [Concomitant]
  7. DOCUSATE [Concomitant]
  8. CALCIUM WITH VITAMIN D [Concomitant]
  9. ASCORBIC ACID [Concomitant]
  10. CEFAZOLIN [Concomitant]
  11. KETOROLAC TROMETHAMINE [Concomitant]

REACTIONS (2)
  - CHOKING [None]
  - SWOLLEN TONGUE [None]
